FAERS Safety Report 10191771 (Version 2)
Quarter: 2016Q2

REPORT INFORMATION
  Report Type: Report from Study
  Country: FR (occurrence: FR)
  Receive Date: 20140523
  Receipt Date: 20160503
  Transmission Date: 20160815
  Serious: Yes (Death, Hospitalization, Other)
  Sender: FDA-Public Use
  Company Number: FR-ALEXION PHARMACEUTICALS INC.-A201401953

PATIENT
  Age: 25 Year

DRUGS (3)
  1. SOLIRIS [Suspect]
     Active Substance: ECULIZUMAB
     Indication: HAEMOLYTIC URAEMIC SYNDROME
     Dosage: 600 MG, QW
     Route: 042
     Dates: start: 20140214, end: 20140512
  2. OFLOXACINE [Suspect]
     Active Substance: OFLOXACIN
     Indication: INFECTION
     Dosage: 125 MG, FOR 2 DAYS
     Route: 042
     Dates: start: 20140507
  3. OFLOXACINE [Suspect]
     Active Substance: OFLOXACIN
     Indication: MULTIPLE ORGAN DYSFUNCTION SYNDROME

REACTIONS (4)
  - Septic shock [Fatal]
  - Serratia test positive [Unknown]
  - Haemolytic uraemic syndrome [Unknown]
  - Condition aggravated [Unknown]

NARRATIVE: CASE EVENT DATE: 201405
